FAERS Safety Report 10217871 (Version 23)
Quarter: 2015Q4

REPORT INFORMATION
  Report Type: Report from Study
  Country: CA (occurrence: CA)
  Receive Date: 20140605
  Receipt Date: 20151005
  Transmission Date: 20160304
  Serious: Yes (Other)
  Sender: FDA-Public Use
  Company Number: CA-ROCHE-1373087

PATIENT
  Age: 40 Year
  Sex: Female
  Weight: 152.4 kg

DRUGS (16)
  1. CYCLOBENZAPRINE [Concomitant]
     Active Substance: CYCLOBENZAPRINE
  2. DICLOFENAC [Concomitant]
     Active Substance: DICLOFENAC
  3. INDAPAMIDE. [Concomitant]
     Active Substance: INDAPAMIDE
  4. NITROGLYCERINE SPRAY [Concomitant]
  5. BISOPROLOL [Concomitant]
     Active Substance: BISOPROLOL
  6. HYDROMORPHONE [Concomitant]
     Active Substance: HYDROMORPHONE
  7. FOLIC ACID. [Concomitant]
     Active Substance: FOLIC ACID
  8. ACTEMRA [Suspect]
     Active Substance: TOCILIZUMAB
     Indication: RHEUMATOID ARTHRITIS
     Route: 042
     Dates: start: 20140311
  9. METHOTREXATE [Concomitant]
     Active Substance: METHOTREXATE
     Route: 065
  10. PLAQUENIL [Concomitant]
     Active Substance: HYDROXYCHLOROQUINE SULFATE
  11. DEXILANT [Concomitant]
     Active Substance: DEXLANSOPRAZOLE
     Route: 065
  12. MONOCOR [Concomitant]
     Active Substance: BISOPROLOL FUMARATE
  13. ACTEMRA [Suspect]
     Active Substance: TOCILIZUMAB
     Route: 042
     Dates: start: 20140423, end: 20150713
  14. CYMBALTA [Concomitant]
     Active Substance: DULOXETINE HYDROCHLORIDE
  15. TRAZODONE [Concomitant]
     Active Substance: TRAZODONE HYDROCHLORIDE
  16. OXAZEPAM. [Concomitant]
     Active Substance: OXAZEPAM

REACTIONS (17)
  - Diarrhoea [Not Recovered/Not Resolved]
  - Pyrexia [Recovered/Resolved]
  - Nasopharyngitis [Not Recovered/Not Resolved]
  - Therapy responder [Unknown]
  - Fatigue [Recovered/Resolved]
  - Ear infection fungal [Recovered/Resolved]
  - Arthralgia [Unknown]
  - Haematochezia [Recovered/Resolved]
  - Mobility decreased [Not Recovered/Not Resolved]
  - Abdominal pain [Recovered/Resolved]
  - Influenza like illness [Unknown]
  - Oropharyngeal pain [Unknown]
  - Pain [Not Recovered/Not Resolved]
  - Drug ineffective [Unknown]
  - Ear infection [Not Recovered/Not Resolved]
  - Hypotension [Recovering/Resolving]
  - Drug ineffective [Unknown]

NARRATIVE: CASE EVENT DATE: 201405
